FAERS Safety Report 14212584 (Version 3)
Quarter: 2018Q1

REPORT INFORMATION
  Report Type: Spontaneous
  Country: US (occurrence: US)
  Receive Date: 20171121
  Receipt Date: 20180130
  Transmission Date: 20180508
  Serious: Yes (Other)
  Sender: FDA-Public Use
  Company Number: US-ABBVIE-17K-163-2166129-00

PATIENT
  Sex: Female
  Weight: 71.28 kg

DRUGS (16)
  1. PREDNISONE. [Suspect]
     Active Substance: PREDNISONE
     Indication: FIBROMYALGIA
     Dosage: 2.5 MG, QD
     Route: 065
  2. ENBREL [Suspect]
     Active Substance: ETANERCEPT
     Indication: PRODUCT USED FOR UNKNOWN INDICATION
     Route: 058
  3. ENBREL [Suspect]
     Active Substance: ETANERCEPT
     Route: 058
     Dates: start: 20170809
  4. CYANOCOBALAMIN. [Concomitant]
     Active Substance: CYANOCOBALAMIN
     Indication: PRODUCT USED FOR UNKNOWN INDICATION
  5. VITAMIN D [Concomitant]
     Active Substance: CHOLECALCIFEROL
     Indication: PRODUCT USED FOR UNKNOWN INDICATION
  6. CALCIUM [Concomitant]
     Active Substance: CALCIUM
     Indication: PRODUCT USED FOR UNKNOWN INDICATION
  7. DEXAMFETAMINE SULFATE [Concomitant]
     Active Substance: DEXTROAMPHETAMINE SULFATE
     Indication: PRODUCT USED FOR UNKNOWN INDICATION
  8. CELEBREX [Concomitant]
     Active Substance: CELECOXIB
     Indication: PRODUCT USED FOR UNKNOWN INDICATION
  9. ADDERALL [Concomitant]
     Active Substance: AMPHETAMINE ASPARTATE\AMPHETAMINE SULFATE\DEXTROAMPHETAMINE SACCHARATE\DEXTROAMPHETAMINE SULFATE
     Indication: PRODUCT USED FOR UNKNOWN INDICATION
  10. CALCIUM [Concomitant]
     Active Substance: CALCIUM
     Indication: PRODUCT USED FOR UNKNOWN INDICATION
  11. VITAMIN D [Concomitant]
     Active Substance: CHOLECALCIFEROL
     Indication: PRODUCT USED FOR UNKNOWN INDICATION
  12. MTX [Suspect]
     Active Substance: METHOTREXATE SODIUM
     Indication: PRODUCT USED FOR UNKNOWN INDICATION
     Route: 065
  13. CELEBREX [Concomitant]
     Active Substance: CELECOXIB
     Indication: PRODUCT USED FOR UNKNOWN INDICATION
     Route: 065
  14. DEXAMFETAMINE SACCHARATE [Concomitant]
     Indication: PRODUCT USED FOR UNKNOWN INDICATION
  15. HUMIRA [Suspect]
     Active Substance: ADALIMUMAB
     Indication: PRODUCT USED FOR UNKNOWN INDICATION
     Route: 058
  16. AMFETAMINE SULFATE [Concomitant]
     Active Substance: AMPHETAMINE SULFATE
     Indication: PRODUCT USED FOR UNKNOWN INDICATION

REACTIONS (20)
  - Osteoarthritis [Unknown]
  - Ulcer [Unknown]
  - Fatigue [Unknown]
  - Rhinorrhoea [Unknown]
  - Eye pruritus [Unknown]
  - Arthralgia [Unknown]
  - Raynaud^s phenomenon [Unknown]
  - Joint swelling [Unknown]
  - Peripheral swelling [Unknown]
  - Injection site bruising [Unknown]
  - Hypoaesthesia [Unknown]
  - Nausea [Unknown]
  - Pain [Unknown]
  - Injection site swelling [Unknown]
  - Drug ineffective [Unknown]
  - Intervertebral disc degeneration [Unknown]
  - Musculoskeletal stiffness [Unknown]
  - Pyrexia [Unknown]
  - Paraesthesia [Unknown]
  - Fibromyalgia [Unknown]

NARRATIVE: CASE EVENT DATE: 2017
